FAERS Safety Report 9553633 (Version 1)
Quarter: 2013Q3

REPORT INFORMATION
  Report Type: Spontaneous
  Country: US (occurrence: None)
  Receive Date: 20130916
  Receipt Date: 20130916
  Transmission Date: 20140515
  Serious: Yes (Other)
  Sender: FDA-Public Use
  Company Number: JPI-P-016543

PATIENT
  Age: 48 Year
  Sex: Female
  Weight: 58.97 kg

DRUGS (6)
  1. XYREM (500 MILLIGRAM/ MILLILITERS, SOLUTION) (SODIUM OXYBATE) [Suspect]
     Indication: NARCOLEPSY
     Route: 048
     Dates: start: 2008
  2. XYREM (500 MILLIGRAM/ MILLILITERS, SOLUTION) (SODIUM OXYBATE) [Suspect]
     Indication: CATAPLEXY
     Route: 048
     Dates: start: 2008
  3. XYREM (500 MILLIGRAM/ MILLILITERS, SOLUTION) (SODIUM OXYBATE) [Suspect]
     Route: 048
     Dates: start: 2008
  4. PRAMIPEXOLE [Concomitant]
  5. VITAMIN D [Concomitant]
  6. LEVOTHYROXINE [Concomitant]

REACTIONS (12)
  - Hypertension [None]
  - Anxiety [None]
  - Poor quality sleep [None]
  - Contusion [None]
  - Somnambulism [None]
  - Periorbital contusion [None]
  - Periorbital haematoma [None]
  - Heart rate increased [None]
  - Headache [None]
  - Condition aggravated [None]
  - Abnormal behaviour [None]
  - Sleep-related eating disorder [None]
